FAERS Safety Report 11318800 (Version 1)
Quarter: 2015Q3

REPORT INFORMATION
  Report Type: Report from Study
  Country: TR (occurrence: TR)
  Receive Date: 20150729
  Receipt Date: 20150729
  Transmission Date: 20151125
  Serious: Yes (Other)
  Sender: FDA-Public Use
  Company Number: TR-ROCHE-1611624

PATIENT

DRUGS (10)
  1. RIBAVIRIN. [Suspect]
     Active Substance: RIBAVIRIN
     Indication: HEPATITIS C
     Dosage: AT A DAILY ORAL DOSE OF 1000 MG (PATIENT WEIGHT LESS THAN 75 KG) OR 1200 MG (PATIENT WEIGHT GREATER
     Route: 048
  2. TELAPREVIR [Suspect]
     Active Substance: TELAPREVIR
     Indication: HEPATITIS C
  3. RIBAVIRIN. [Suspect]
     Active Substance: RIBAVIRIN
     Indication: HEPATITIS C
     Dosage: AT A DAILY ORAL DOSE OF 1000 MG (PATIENT WEIGHT LESS THAN 75 KG) OR 1200 MG (PATIENT WEIGHT GREATER
     Route: 048
  4. RIBAVIRIN. [Suspect]
     Active Substance: RIBAVIRIN
     Indication: HEPATITIS C
  5. PEG-INTERFERON ALFA 2A [Suspect]
     Active Substance: PEGINTERFERON ALFA-2A
     Indication: HEPATITIS C
  6. TELAPREVIR [Suspect]
     Active Substance: TELAPREVIR
     Indication: HEPATITIS C
     Route: 048
  7. PEG-INTERFERON ALFA 2A [Suspect]
     Active Substance: PEGINTERFERON ALFA-2A
     Indication: HEPATITIS C
     Route: 058
  8. RIBAVIRIN. [Suspect]
     Active Substance: RIBAVIRIN
     Indication: HEPATITIS C
  9. PEGINTERFERON ALFA-2B [Suspect]
     Active Substance: PEGINTERFERON ALFA-2B
     Indication: HEPATITIS C
  10. PEGINTERFERON ALFA-2B [Suspect]
     Active Substance: PEGINTERFERON ALFA-2B
     Indication: HEPATITIS C
     Route: 058

REACTIONS (35)
  - Anaemia [Unknown]
  - Dyspepsia [Unknown]
  - Dysgeusia [Unknown]
  - Dry skin [Unknown]
  - Urinary tract infection [Unknown]
  - Fatigue [Unknown]
  - Malaise [Unknown]
  - Pyrexia [Unknown]
  - Weight decreased [Unknown]
  - Dry mouth [Unknown]
  - Rash [Unknown]
  - Depression [Unknown]
  - Insomnia [Unknown]
  - Mood altered [Unknown]
  - Viral upper respiratory tract infection [Unknown]
  - Headache [Unknown]
  - Diarrhoea [Unknown]
  - Haemorrhoids [Unknown]
  - Anal pruritus [Unknown]
  - Nausea [Unknown]
  - Vomiting [Unknown]
  - Pruritus [Unknown]
  - Haemoptysis [Unknown]
  - Abdominal pain upper [Unknown]
  - Anxiety [Unknown]
  - Thrombocytopenia [Unknown]
  - Decreased appetite [Unknown]
  - Cough [Unknown]
  - Rectal haemorrhage [Unknown]
  - Affect lability [Unknown]
  - Neutropenia [Unknown]
  - Upper gastrointestinal haemorrhage [Unknown]
  - Constipation [Unknown]
  - Anorectal discomfort [Unknown]
  - Hypothyroidism [Unknown]
